FAERS Safety Report 7286560-4 (Version None)
Quarter: 2011Q1

REPORT INFORMATION
  Report Type: 
  Country: None (occurrence: None)
  Receive Date: 20110210
  Receipt Date: 20110208
  Transmission Date: 20110831
  Serious: No
  Sender: FDA-Public Use
  Company Number: US-PFIZER INC-2011028758

PATIENT
  Sex: Female
  Weight: 79 kg

DRUGS (4)
  1. CHANTIX [Suspect]
     Dosage: 0.5 MG, 2X/DAY
     Route: 048
     Dates: start: 20080601, end: 20080601
  2. PAXIL [Concomitant]
     Indication: DEPRESSION
     Dosage: 5 MG, DAILY
  3. CHANTIX [Suspect]
     Indication: SMOKING CESSATION THERAPY
     Dosage: 0.5 MG, 1X/DAY
     Route: 048
     Dates: start: 20080601, end: 20080601
  4. SYNTHROID [Suspect]
     Indication: HYPOTHYROIDISM
     Dosage: 0.125 MG, UNK

REACTIONS (4)
  - IMPAIRED DRIVING ABILITY [None]
  - DIZZINESS [None]
  - DISORIENTATION [None]
  - MALAISE [None]
